FAERS Safety Report 14393084 (Version 2)
Quarter: 2018Q2

REPORT INFORMATION
  Report Type: Spontaneous
  Country: US (occurrence: US)
  Receive Date: 20180116
  Receipt Date: 20180413
  Transmission Date: 20180711
  Serious: No
  Sender: FDA-Public Use
  Company Number: US-NOVOPROD-576445

PATIENT
  Age: 60 Year
  Sex: Female

DRUGS (4)
  1. VICTOZA [Suspect]
     Active Substance: LIRAGLUTIDE
     Indication: HYPERGLYCAEMIA
  2. TRESIBA [Suspect]
     Active Substance: INSULIN DEGLUDEC
     Indication: HYPERGLYCAEMIA
  3. VICTOZA [Suspect]
     Active Substance: LIRAGLUTIDE
     Indication: TYPE 2 DIABETES MELLITUS
     Dosage: 1.8 MG, UNK
     Route: 058
     Dates: start: 201712, end: 201712
  4. TRESIBA [Suspect]
     Active Substance: INSULIN DEGLUDEC
     Indication: TYPE 2 DIABETES MELLITUS
     Dosage: 30 U, UNK
     Route: 058
     Dates: start: 201701

REACTIONS (1)
  - Diarrhoea [Recovered/Resolved]
